FAERS Safety Report 6074139-1 (Version None)
Quarter: 2009Q1

REPORT INFORMATION
  Report Type: 
  Country: None (occurrence: None)
  Receive Date: 20090211
  Receipt Date: 20090206
  Transmission Date: 20090719
  Serious: Yes (Hospitalization)
  Sender: FDA-Public Use
  Company Number: D0060352A

PATIENT
  Age: 41 Year
  Sex: Female

DRUGS (1)
  1. VIANI MITE [Suspect]
     Dosage: 150UG TWICE PER DAY
     Route: 055
     Dates: start: 20090113, end: 20090115

REACTIONS (2)
  - DRUG ERUPTION [None]
  - RASH GENERALISED [None]
